FAERS Safety Report 6931058-3 (Version None)
Quarter: 2010Q3

REPORT INFORMATION
  Report Type: 
  Country: None (occurrence: None)
  Receive Date: 20100818
  Receipt Date: 20100803
  Transmission Date: 20110219
  Serious: Yes (Other)
  Sender: FDA-Public Use
  Company Number: PHHY2010JP51639

PATIENT
  Age: 38 Year
  Sex: Female

DRUGS (3)
  1. DIOVAN [Suspect]
     Indication: HYPERTENSION
     Dosage: 40 MG, UNK
     Route: 048
     Dates: start: 20100525, end: 20100610
  2. DIOVAN [Suspect]
     Dosage: 80 MG, UNK
     Route: 048
     Dates: start: 20100610
  3. AMLODIPINE [Suspect]
     Dosage: 5 MG, UNK
     Route: 048
     Dates: start: 20100610

REACTIONS (5)
  - BLOOD PRESSURE INCREASED [None]
  - BLOOD PRESSURE SYSTOLIC INCREASED [None]
  - HEPATIC FUNCTION ABNORMAL [None]
  - HEPATIC STEATOSIS [None]
  - TREATMENT NONCOMPLIANCE [None]
